FAERS Safety Report 5655118-2 (Version None)
Quarter: 2008Q1

REPORT INFORMATION
  Report Type: 
  Country: None (occurrence: None)
  Receive Date: 20080307
  Receipt Date: 20071220
  Transmission Date: 20080703
  Serious: No
  Sender: FDA-Public Use
  Company Number: A0699990A

PATIENT
  Age: 45 Year
  Sex: Male

DRUGS (7)
  1. REQUIP [Suspect]
     Indication: RESTLESS LEGS SYNDROME
     Dosage: 4MCG AT NIGHT
     Route: 048
  2. PAXIL [Concomitant]
  3. LOPRESSOR [Concomitant]
  4. VASOTEC [Concomitant]
  5. ULTRAM [Concomitant]
  6. ZANAFLEX [Concomitant]
  7. ASPIRIN [Concomitant]

REACTIONS (3)
  - COLD SWEAT [None]
  - NAUSEA [None]
  - VOMITING [None]
